FAERS Safety Report 6918705-7 (Version None)
Quarter: 2010Q3

REPORT INFORMATION
  Report Type: 
  Country: None (occurrence: None)
  Receive Date: 20100811
  Receipt Date: 20100802
  Transmission Date: 20110219
  Serious: Yes (Other)
  Sender: FDA-Public Use
  Company Number: PHHY2010BR51372

PATIENT
  Sex: Female

DRUGS (1)
  1. EXELON [Suspect]
     Dosage: 18 MG/10 CM^2
     Route: 062

REACTIONS (2)
  - APPLICATION SITE BLEEDING [None]
  - APPLICATION SITE HYPERSENSITIVITY [None]
